FAERS Safety Report 8144040-8 (Version None)
Quarter: 2012Q1

REPORT INFORMATION
  Report Type: 
  Country: None (occurrence: None)
  Receive Date: 20120217
  Receipt Date: 20120217
  Transmission Date: 20120608
  Serious: No
  Sender: FDA-Public Use
  Company Number: None

PATIENT
  Sex: Male
  Weight: 98.883 kg

DRUGS (2)
  1. FANAPT [Suspect]
     Indication: BIPOLAR DISORDER
     Dosage: 1/2 TAB
     Route: 048
     Dates: start: 20101214, end: 20110727
  2. HALDOL [Concomitant]
     Indication: BIPOLAR DISORDER
     Dosage: 1
     Route: 048
     Dates: start: 20110730, end: 20111204

REACTIONS (3)
  - OFF LABEL USE [None]
  - TUBULOINTERSTITIAL NEPHRITIS [None]
  - RENAL IMPAIRMENT [None]
